FAERS Safety Report 7793754-8 (Version None)
Quarter: 2011Q4

REPORT INFORMATION
  Report Type: 
  Country: None (occurrence: None)
  Receive Date: 20111003
  Receipt Date: 20110926
  Transmission Date: 20120403
  Serious: Yes (Other)
  Sender: FDA-Public Use
  Company Number: GR-AMGEN-GRCSP2011031223

PATIENT
  Age: 88 Year
  Sex: Female
  Weight: 49 kg

DRUGS (6)
  1. DIGOXIN [Concomitant]
     Dosage: UNK
     Route: 048
     Dates: start: 20060101
  2. LASIX [Concomitant]
     Dosage: UNK
     Route: 048
     Dates: start: 20060101
  3. VALSARTAN [Concomitant]
     Dosage: 160 MG, UNK
     Route: 048
     Dates: start: 20060101
  4. PROLIA [Suspect]
     Indication: OSTEOPOROSIS
     Dosage: UNK
     Dates: start: 20110413
  5. SINTROM [Concomitant]
     Dosage: UNK
     Route: 048
     Dates: start: 20060101
  6. ALPHA D3 [Concomitant]
     Dosage: UNK UNK, QD
     Route: 048
     Dates: start: 20110412

REACTIONS (4)
  - MOBILITY DECREASED [None]
  - DYSSTASIA [None]
  - BEDRIDDEN [None]
  - MUSCULOSKELETAL PAIN [None]
